FAERS Safety Report 24313253 (Version 2)
Quarter: 2024Q3

REPORT INFORMATION
  Report Type: Spontaneous
  Country: RU (occurrence: RU)
  Receive Date: 20240912
  Receipt Date: 20240914
  Transmission Date: 20241017
  Serious: Yes (Other)
  Sender: ABBVIE
  Company Number: RU-ABBVIE-5910659

PATIENT
  Age: 76 Year
  Sex: Female

DRUGS (3)
  1. ZEMPLAR [Suspect]
     Active Substance: PARICALCITOL
     Indication: Product used for unknown indication
     Dosage: TIME INTERVAL: 0.33333333 WEEKS: SOLUTION 1ML -5 MICROGRAM, 3 TIMES PER WEEK, 15 MCG/PER WEEK
     Route: 042
     Dates: start: 20231207
  2. ZEMPLAR [Suspect]
     Active Substance: PARICALCITOL
     Indication: Product used for unknown indication
     Dosage: 10 MCG/PER WEEK
     Route: 042
     Dates: start: 2024, end: 2024
  3. ZEMPLAR [Suspect]
     Active Substance: PARICALCITOL
     Indication: Product used for unknown indication
     Dosage: 5 MCG/PER WEEK
     Route: 042
     Dates: start: 2024, end: 20240323

REACTIONS (1)
  - Blood pressure systolic increased [Recovered/Resolved]
